FAERS Safety Report 8169837-X (Version None)
Quarter: 2012Q1

REPORT INFORMATION
  Report Type: 
  Country: None (occurrence: None)
  Receive Date: 20120228
  Receipt Date: 20120224
  Transmission Date: 20120608
  Serious: Yes (Death)
  Sender: FDA-Public Use
  Company Number: AU-B.I. PHARMACEUTICALS,INC./RIDGEFIELD-2012-AU-00377AU

PATIENT
  Sex: Female

DRUGS (6)
  1. PANTOPRAZOLE [Concomitant]
     Indication: HIATUS HERNIA
  2. PRADAXA [Suspect]
     Indication: ATRIAL FIBRILLATION
     Dosage: 220 MG
     Dates: start: 20110929
  3. CEPHULEXIM [Concomitant]
     Dosage: 250 MG
  4. FUROSEMIDE [Concomitant]
     Dosage: 80 MG
  5. BISOPROLOL FUMARATE [Concomitant]
     Dosage: 10 MG
  6. PANTOPRAZOLE [Concomitant]
     Indication: GASTROOESOPHAGEAL REFLUX DISEASE
     Dosage: 40 MG

REACTIONS (4)
  - URINARY TRACT INFECTION [None]
  - SHOCK [None]
  - MELAENA [None]
  - GASTROINTESTINAL HAEMORRHAGE [None]
